FAERS Safety Report 4453565-8 (Version None)
Quarter: 2004Q3

REPORT INFORMATION
  Report Type: 
  Country: None (occurrence: None)
  Receive Date: 20040920
  Receipt Date: 20040909
  Transmission Date: 20050211
  Serious: Yes (Other)
  Sender: FDA-Public Use
  Company Number: US-JNJFOC-20040903736

PATIENT
  Sex: Male

DRUGS (2)
  1. CONCERTA [Suspect]
     Route: 049
     Dates: start: 20020101, end: 20040601
  2. CONCERTA [Suspect]
     Route: 049
     Dates: start: 20020101, end: 20040601

REACTIONS (6)
  - ABNORMAL BEHAVIOUR [None]
  - ASTHENIA [None]
  - BRAIN NEOPLASM BENIGN [None]
  - CEREBRAL CYST [None]
  - PSYCHOMOTOR HYPERACTIVITY [None]
  - SENSORY LOSS [None]
